FAERS Safety Report 23831294 (Version 1)
Quarter: 2024Q2

REPORT INFORMATION
  Report Type: Spontaneous
  Country: US (occurrence: None)
  Receive Date: 20240507
  Receipt Date: 20240507
  Transmission Date: 20240715
  Serious: Yes (Death)
  Sender: FDA-Public Use
  Company Number: None

PATIENT
  Age: 2 Year
  Sex: Female
  Weight: 14.27 kg

DRUGS (5)
  1. IWILFIN [Suspect]
     Active Substance: EFLORNITHINE HYDROCHLORIDE
     Indication: Adrenal gland cancer
     Dosage: FREQUENCY : TWICE A DAY;?
     Route: 048
     Dates: start: 20240209, end: 20240503
  2. Oxycodone HCL Oral Concentrate 10 mg/0.5mL [Concomitant]
  3. MIRALAX [Concomitant]
     Active Substance: POLYETHYLENE GLYCOL 3350
  4. Magic Mouthwash Compound [Concomitant]
  5. Pentamidine Isethionate Injection [Concomitant]

REACTIONS (1)
  - Death [None]

NARRATIVE: CASE EVENT DATE: 20240503
